FAERS Safety Report 4455568-6 (Version None)
Quarter: 2004Q3

REPORT INFORMATION
  Report Type: 
  Country: None (occurrence: None)
  Receive Date: 20040917
  Receipt Date: 20040901
  Transmission Date: 20050211
  Serious: Yes (Hospitalization)
  Sender: FDA-Public Use
  Company Number: USA040977155

PATIENT
  Sex: Female

DRUGS (2)
  1. PROZAC [Suspect]
     Dates: start: 19970101
  2. FLUOXETINE [Concomitant]

REACTIONS (1)
  - GASTRIC BYPASS [None]
